FAERS Safety Report 10267763 (Version 1)
Quarter: 2014Q2

REPORT INFORMATION
  Report Type: Spontaneous
  Country: US (occurrence: US)
  Receive Date: 20140630
  Receipt Date: 20140630
  Transmission Date: 20141212
  Serious: No
  Sender: FDA-Public Use
  Company Number: US-GLAXOSMITHKLINE-A1073002A

PATIENT
  Age: 4 Month
  Sex: Male

DRUGS (2)
  1. RANITIDINE HYDROCHLORIDE [Suspect]
     Indication: ILL-DEFINED DISORDER
     Dosage: 1.2ML THREE TIMES PER DAY
     Route: 048
     Dates: start: 201309
  2. ZANTAC [Concomitant]

REACTIONS (1)
  - Drug ineffective [Unknown]
